FAERS Safety Report 8018109-2 (Version None)
Quarter: 2012Q1

REPORT INFORMATION
  Report Type: 
  Country: None (occurrence: None)
  Receive Date: 20120103
  Receipt Date: 20111222
  Transmission Date: 20120608
  Serious: Yes (Disabling)
  Sender: FDA-Public Use
  Company Number: JP-ELI_LILLY_AND_COMPANY-JP201112007006

PATIENT
  Age: 65 Year
  Sex: Female

DRUGS (2)
  1. MELOXICAM [Concomitant]
     Indication: ANALGESIC THERAPY
     Dosage: UNK
     Route: 048
     Dates: start: 20090101, end: 20111222
  2. EVISTA [Suspect]
     Indication: OSTEOPOROSIS
     Dosage: 60 MG, UNK
     Route: 048
     Dates: start: 20100101, end: 20111222

REACTIONS (2)
  - OCULAR HYPERAEMIA [None]
  - VISION BLURRED [None]
